FAERS Safety Report 23955432 (Version 1)
Quarter: 2024Q2

REPORT INFORMATION
  Report Type: Spontaneous
  Country: US (occurrence: US)
  Receive Date: 20240610
  Receipt Date: 20240610
  Transmission Date: 20240716
  Serious: No
  Sender: FDA-Public Use
  Company Number: US-AMGEN-USASP2024112285

PATIENT
  Age: 35 Year
  Sex: Female

DRUGS (18)
  1. RITUXIMAB [Suspect]
     Active Substance: RITUXIMAB
     Indication: Autoimmune haemolytic anaemia
     Dosage: UNK
     Route: 065
  2. HYDROXYCHLOROQUINE [Concomitant]
     Active Substance: HYDROXYCHLOROQUINE
  3. CHLOROQUINE [Concomitant]
     Active Substance: CHLOROQUINE
  4. METHOTREXATE [Concomitant]
     Active Substance: METHOTREXATE
  5. AZATHIOPRINE [Concomitant]
     Active Substance: AZATHIOPRINE
  6. PENTOXIFYLLINE [Concomitant]
     Active Substance: PENTOXIFYLLINE
     Dosage: 800 MILLIGRAM, BID
  7. ASPIRIN [Concomitant]
     Active Substance: ASPIRIN
     Dosage: 81 MILLIGRAM, QD
  8. DOXAZOSIN [Concomitant]
     Active Substance: DOXAZOSIN MESYLATE
  9. SILDENAFIL [Concomitant]
     Active Substance: SILDENAFIL
  10. RUXOLITINIB [Concomitant]
     Active Substance: RUXOLITINIB
     Route: 061
  11. CLOBETASOL [Concomitant]
     Active Substance: CLOBETASOL
  12. BELIMUMAB [Concomitant]
     Active Substance: BELIMUMAB
  13. MYCOPHENOLATE MOFETIL [Concomitant]
     Active Substance: MYCOPHENOLATE MOFETIL
     Dosage: 1 GRAM, BID
  14. DAPSONE [Concomitant]
     Active Substance: DAPSONE
  15. TOFACITINIB [Concomitant]
     Active Substance: TOFACITINIB
  16. LENALIDOMIDE [Concomitant]
     Active Substance: LENALIDOMIDE
  17. BOTULINUM TOXIN NOS [Concomitant]
     Active Substance: BOTULINUM TOXIN NOS
  18. ANIFROLUMAB [Concomitant]
     Active Substance: ANIFROLUMAB
     Indication: Chronic cutaneous lupus erythematosus
     Dosage: 300 MILLIGRAM, Q4WK
     Route: 042

REACTIONS (3)
  - Off label use [Unknown]
  - Drug intolerance [Unknown]
  - Drug ineffective for unapproved indication [Unknown]
